FAERS Safety Report 8128971-0 (Version None)
Quarter: 2012Q1

REPORT INFORMATION
  Report Type: 
  Country: None (occurrence: None)
  Receive Date: 20120210
  Receipt Date: 20110719
  Transmission Date: 20120608
  Serious: No
  Sender: FDA-Public Use
  Company Number: US-BRISTOL-MYERS SQUIBB COMPANY-15890445

PATIENT
  Sex: Female

DRUGS (1)
  1. ORENCIA [Suspect]
     Dosage: TOTAL 4 INFUSIONS AND  TWO OF THEM WERE DELAYED

REACTIONS (4)
  - PYREXIA [None]
  - MUSCULOSKELETAL PAIN [None]
  - JOINT SWELLING [None]
  - UPPER RESPIRATORY TRACT INFECTION [None]
